FAERS Safety Report 9074616 (Version 1)
Quarter: 2013Q1

REPORT INFORMATION
  Report Type: Report from Study
  Country: US (occurrence: US)
  Receive Date: 20130129
  Receipt Date: 20130129
  Transmission Date: 20140127
  Serious: No
  Sender: FDA-Public Use
  Company Number: US-ABBOTT-12P-163-0930544-00

PATIENT
  Age: 57 Year
  Sex: Male

DRUGS (11)
  1. HUMIRA 40 MG/0.8 ML PEN [Suspect]
     Indication: RHEUMATOID ARTHRITIS
     Dates: start: 20120409
  2. LYRICA [Concomitant]
     Indication: PAIN
  3. CYMBALTA [Concomitant]
     Indication: PAIN
  4. VERAPAMIL [Concomitant]
     Indication: ARRHYTHMIA
  5. BUPROPION [Concomitant]
     Indication: PRODUCT USED FOR UNKNOWN INDICATION
  6. ZOLPIDEM [Concomitant]
     Indication: INSOMNIA
     Dosage: AT BED TIME, AS NEEDED
  7. OMEPRAZOLE [Concomitant]
     Indication: PRODUCT USED FOR UNKNOWN INDICATION
     Dosage: DAILY, IN AM
  8. TAMSULOSIN [Concomitant]
     Indication: PROSTATIC DISORDER
  9. NAPROXEN [Concomitant]
     Indication: BACK PAIN
  10. SPIRIVA [Concomitant]
     Indication: HYPERSENSITIVITY
  11. EPIPEN [Concomitant]
     Indication: ARTHROPOD STING

REACTIONS (4)
  - Sneezing [Not Recovered/Not Resolved]
  - Feeling hot [Not Recovered/Not Resolved]
  - Pruritus [Not Recovered/Not Resolved]
  - Swelling face [Not Recovered/Not Resolved]
